FAERS Safety Report 7320324-8 (Version None)
Quarter: 2011Q1

REPORT INFORMATION
  Report Type: 
  Country: None (occurrence: None)
  Receive Date: 20110223
  Receipt Date: 20110223
  Transmission Date: 20110831
  Serious: Yes (Hospitalization)
  Sender: FDA-Public Use
  Company Number: None

PATIENT
  Age: 31 Year
  Sex: Female
  Weight: 68.3 kg

DRUGS (2)
  1. IMMUNE GLOBULIN (HUMAN) [Suspect]
     Dosage: 30 GRAMS ONCE IV  DRIP
     Route: 042
     Dates: start: 20110213, end: 20110213
  2. IMMUNE GLOBULIN (HUMAN) [Suspect]
     Indication: MYASTHENIA GRAVIS
     Dosage: 60 GRAMS ONCE IV DRIP
     Route: 041
     Dates: start: 20110211, end: 20110211

REACTIONS (3)
  - HAEMATURIA [None]
  - INFLUENZA LIKE ILLNESS [None]
  - HAEMOLYTIC ANAEMIA [None]
